FAERS Safety Report 7635238-3 (Version None)
Quarter: 2011Q3

REPORT INFORMATION
  Report Type: 
  Country: None (occurrence: None)
  Receive Date: 20110718
  Receipt Date: 20110705
  Transmission Date: 20111222
  Serious: Yes (Death, Hospitalization)
  Sender: FDA-Public Use
  Company Number: PYR-11-14

PATIENT
  Age: 8 Month
  Sex: Female

DRUGS (5)
  1. ISONIAZID [Concomitant]
  2. PYRAZINAMIDE [Suspect]
     Indication: TUBERCULOSIS
     Dosage: 40MG/KG DAY
  3. RIFAMPICIN [Concomitant]
  4. ETHAMBUTOL HYDROCHLORIDE [Concomitant]
  5. COTRIMOXALE PROPHYLAXIS [Concomitant]

REACTIONS (13)
  - IMMUNE RECONSTITUTION SYNDROME [None]
  - HEPATIC ENCEPHALOPATHY [None]
  - BRAIN OEDEMA [None]
  - HEPATITIS B CORE ANTIBODY POSITIVE [None]
  - HAEMORRHAGE [None]
  - HEPATIC CIRRHOSIS [None]
  - COAGULOPATHY [None]
  - ACUTE HEPATIC FAILURE [None]
  - HEPATITIS B E ANTIGEN POSITIVE [None]
  - LYMPHADENOPATHY [None]
  - BOVINE TUBERCULOSIS [None]
  - HEPATITIS B SURFACE ANTIGEN POSITIVE [None]
  - HEPATOTOXICITY [None]
